FAERS Safety Report 8278587-0 (Version None)
Quarter: 2012Q2

REPORT INFORMATION
  Report Type: 
  Country: None (occurrence: None)
  Receive Date: 20120412
  Receipt Date: 20120402
  Transmission Date: 20120825
  Serious: Yes (Death, Hospitalization, Other)
  Sender: FDA-Public Use
  Company Number: JP-PFIZER INC-2012072114

PATIENT
  Age: 78 Year
  Sex: Male
  Weight: 50 kg

DRUGS (11)
  1. FAMOTIDINE [Concomitant]
     Dosage: 2 %
     Dates: end: 20110131
  2. SHAKUYAKUKANZOUTOU [Concomitant]
     Dosage: UNK
     Dates: end: 20110131
  3. ENTERONON R [Concomitant]
     Dosage: UNK
     Dates: end: 20110131
  4. PHENYTOIN SODIUM CAP [Suspect]
     Indication: EPILEPSY
     Dosage: 1 G, 2X/DAY
     Dates: end: 20110131
  5. DAIKENTYUTO [Concomitant]
     Dosage: UNK
     Dates: end: 20110131
  6. SELBEX [Concomitant]
     Dosage: UNK
     Dates: end: 20110131
  7. MAGNESIUM OXIDE [Concomitant]
     Dosage: UNK
     Dates: end: 20110131
  8. URSO 250 [Concomitant]
     Dosage: UNK
     Dates: end: 20110131
  9. PROLMON [Concomitant]
     Dosage: UNK
     Dates: end: 20110131
  10. GASCON [Concomitant]
     Dosage: UNK
     Dates: end: 20110131
  11. LIPITOR [Suspect]
     Indication: DYSLIPIDAEMIA
     Dosage: 10 MG, 1X/DAY
     Route: 048
     Dates: end: 20110131

REACTIONS (2)
  - MENINGIOMA [None]
  - HEPATITIS FULMINANT [None]
